FAERS Safety Report 10012163 (Version 1)
Quarter: 2014Q1

REPORT INFORMATION
  Report Type: Spontaneous
  Country: US (occurrence: US)
  Receive Date: 20140314
  Receipt Date: 20140314
  Transmission Date: 20141002
  Serious: Yes (Other)
  Sender: FDA-Public Use
  Company Number: PHHY2014US028648

PATIENT
  Age: 75 Year
  Sex: Male

DRUGS (7)
  1. HYDROCHLOROTHIAZIDE [Suspect]
     Indication: HYPERTENSION
  2. AMLODIPINE [Suspect]
     Indication: HYPERTENSION
  3. FUROSEMIDE [Suspect]
     Indication: HYPERTENSION
  4. CLONIDINE [Suspect]
     Indication: HYPERTENSION
  5. BORTEZOMIB [Suspect]
     Dosage: 1.3 MG/M2, TWICE WEEKLY
     Route: 042
  6. BORTEZOMIB [Suspect]
     Dosage: 1.3 MG/M2, ONCE WEEKLY
  7. DEXAMETHASONE [Concomitant]

REACTIONS (3)
  - Neuropathy peripheral [Recovered/Resolved]
  - Hypertension [Unknown]
  - Drug ineffective [Unknown]
